FAERS Safety Report 24900118 (Version 1)
Quarter: 2025Q1

REPORT INFORMATION
  Report Type: Spontaneous
  Country: CA (occurrence: CA)
  Receive Date: 20250129
  Receipt Date: 20250129
  Transmission Date: 20250408
  Serious: Yes (Life-Threatening, Hospitalization, Other)
  Sender: FRESENIUS KABI
  Company Number: CA-FreseniusKabi-FK202416935

PATIENT
  Age: 12 Year
  Sex: Female

DRUGS (2)
  1. ETOPOSIDE [Suspect]
     Active Substance: ETOPOSIDE
     Indication: Osteosarcoma
     Dosage: FOA: LIQUID INTRAVENOUS?1 EVERY 1 DAY
     Route: 042
  2. IFEX [Suspect]
     Active Substance: IFOSFAMIDE
     Indication: Osteosarcoma
     Dosage: FOA: POWDER FOR SOLUTION INTRAVENOUS?1 EVERY 1 DAY
     Route: 042

REACTIONS (7)
  - Bacteraemia [Recovered/Resolved]
  - Nausea [Recovered/Resolved]
  - Escherichia test positive [Recovered/Resolved]
  - Febrile neutropenia [Recovered/Resolved]
  - Headache [Recovered/Resolved]
  - Neutropenia [Recovering/Resolving]
  - Pyrexia [Recovering/Resolving]
